FAERS Safety Report 8007047-7 (Version None)
Quarter: 2011Q4

REPORT INFORMATION
  Report Type: 
  Country: None (occurrence: None)
  Receive Date: 20111227
  Receipt Date: 20111220
  Transmission Date: 20120403
  Serious: Yes (Hospitalization)
  Sender: FDA-Public Use
  Company Number: DE-JNJFOC-20111208923

PATIENT
  Age: 51 Year
  Sex: Male

DRUGS (5)
  1. LEVOFLOXACIN [Suspect]
     Indication: BODY TEMPERATURE INCREASED
     Route: 048
     Dates: start: 20110621, end: 20110621
  2. ACETAMINOPHEN [Suspect]
     Indication: HEADACHE
     Route: 048
     Dates: start: 20110619, end: 20110621
  3. LEVOFLOXACIN [Suspect]
     Indication: PHARYNGITIS
     Route: 048
     Dates: start: 20110621, end: 20110621
  4. ACETAMINOPHEN [Suspect]
     Route: 048
  5. LEVOFLOXACIN [Suspect]
     Indication: GENERAL PHYSICAL HEALTH DETERIORATION
     Route: 048
     Dates: start: 20110621, end: 20110621

REACTIONS (4)
  - JAUNDICE [None]
  - TRANSAMINASES INCREASED [None]
  - RASH [None]
  - CHOLESTASIS [None]
